FAERS Safety Report 18733661 (Version 1)
Quarter: 2021Q1

REPORT INFORMATION
  Report Type: Spontaneous
  Country: FR (occurrence: FR)
  Receive Date: 20210113
  Receipt Date: 20210113
  Transmission Date: 20210419
  Serious: Yes (Hospitalization)
  Sender: FDA-Public Use
  Company Number: FR-TEVA-2021-FR-1868443

PATIENT
  Age: 80 Year
  Sex: Male

DRUGS (15)
  1. MIANSERINE (CHLORHYDRATE DE) [Concomitant]
     Active Substance: MIANSERIN HYDROCHLORIDE
  2. KARDEGIC [Concomitant]
     Active Substance: ASPIRIN DL-LYSINE
  3. TIMOLOL (MALEATE DE) [Concomitant]
  4. LOVENOX [Concomitant]
     Active Substance: ENOXAPARIN SODIUM
  5. LERCANIDIPINE (CHLORHYDRATE DE) [Suspect]
     Active Substance: LERCANIDIPINE HYDROCHLORIDE
     Indication: HYPERTENSION
     Dosage: 1 DOSAGE FORM
     Route: 048
     Dates: start: 202010, end: 202011
  6. TAMSULOSINE [Suspect]
     Active Substance: TAMSULOSIN HYDROCHLORIDE
     Indication: PRODUCT USED FOR UNKNOWN INDICATION
     Dosage: 1 DOSAGE FORM
     Route: 048
     Dates: end: 202011
  7. DIFFU K [Suspect]
     Active Substance: POTASSIUM CHLORIDE
     Indication: HYPOKALAEMIA
     Dosage: 3 DOSAGE FORM
     Route: 048
     Dates: start: 202010, end: 202011
  8. FORLAX 10 G, POUDRE POUR SOLUTION BUVABLE EN SACHET?DOSE [Suspect]
     Active Substance: POLYETHYLENE GLYCOL 4000
     Indication: CONSTIPATION
     Dosage: 1 DOSAGE FORM
     Route: 048
     Dates: start: 202010, end: 202011
  9. GANFORT [Concomitant]
     Active Substance: BIMATOPROST\TIMOLOL
  10. DORZOLAMIDE (CHLORHYDRATE DE) [Concomitant]
     Active Substance: DORZOLAMIDE
  11. ROSUVASTATINE [Concomitant]
     Active Substance: ROSUVASTATIN
  12. DUPHALAC [Concomitant]
     Active Substance: LACTULOSE
  13. MODOPAR 62,5 (50 MG/12,5 MG), GELULE [Suspect]
     Active Substance: BENSERAZIDE HYDROCHLORIDE\LEVODOPA
     Indication: PARKINSON^S DISEASE
     Dosage: 4 DOSAGE FORM
     Route: 048
     Dates: start: 202010, end: 202011
  14. SERESTA [Concomitant]
     Active Substance: OXAZEPAM
  15. CELIPROLOL [Concomitant]
     Active Substance: CELIPROLOL

REACTIONS (1)
  - Orthostatic hypotension [Recovered/Resolved]

NARRATIVE: CASE EVENT DATE: 202010
